FAERS Safety Report 9299342 (Version 1)
Quarter: 2013Q2

REPORT INFORMATION
  Report Type: Spontaneous
  Country: BR (occurrence: BR)
  Receive Date: 20130520
  Receipt Date: 20130520
  Transmission Date: 20140414
  Serious: Yes (Other)
  Sender: FDA-Public Use
  Company Number: BR-PFIZER INC-2013150743

PATIENT
  Age: 68 Year
  Sex: Male
  Weight: 69 kg

DRUGS (6)
  1. LIPITOR [Suspect]
     Dosage: 20 MG (ONE TABLET), 1X/DAY
     Route: 048
  2. ATENOLOL [Concomitant]
     Indication: HYPERTENSION
     Dosage: ONE TABLET, 1X/DAY
     Dates: start: 2012
  3. ANCORON [Concomitant]
     Indication: ARRHYTHMIA
     Dosage: ONE TABLET, 1X/DAY
     Dates: start: 2012
  4. AAS [Concomitant]
     Indication: BLOOD DISORDER
     Dosage: 100 (NO UNITS PROVIDED)
     Dates: start: 201111
  5. GALVUS [Concomitant]
     Indication: DIABETES MELLITUS
     Dosage: (NO UNITS PROVIDED) TWO TABLETS DAILY
     Dates: start: 201111
  6. METFORMIN [Concomitant]
     Indication: DIABETES MELLITUS
     Dosage: 850 (NO UNITS PROVIDED) TWO TABLETS DAILY
     Dates: start: 201111

REACTIONS (1)
  - Venous occlusion [Unknown]
